FAERS Safety Report 6182334-6 (Version None)
Quarter: 2009Q2

REPORT INFORMATION
  Report Type: 
  Country: None (occurrence: None)
  Receive Date: 20090505
  Receipt Date: 20090505
  Transmission Date: 20091009
  Serious: Yes (Other)
  Sender: FDA-Public Use
  Company Number: None

PATIENT
  Age: 47 Year
  Sex: Female
  Weight: 56.6996 kg

DRUGS (2)
  1. ALDARA [Suspect]
     Indication: ACTINIC KERATOSIS
  2. ALDARA [Suspect]
     Indication: BASAL CELL CARCINOMA

REACTIONS (9)
  - AMNESIA [None]
  - CHEST DISCOMFORT [None]
  - CONFUSIONAL STATE [None]
  - DIZZINESS [None]
  - DYSPNOEA [None]
  - FATIGUE [None]
  - FEELING ABNORMAL [None]
  - FUNGAL INFECTION [None]
  - POISONING [None]
